FAERS Safety Report 12660168 (Version 6)
Quarter: 2017Q3

REPORT INFORMATION
  Report Type: Spontaneous
  Country: JP (occurrence: JP)
  Receive Date: 20160817
  Receipt Date: 20170720
  Transmission Date: 20171127
  Serious: Yes (Death, Hospitalization)
  Sender: FDA-Public Use
  Company Number: JP-FERRINGPH-2016FE03821

PATIENT

DRUGS (11)
  1. EVIPROSTAT                         /00833501/ [Concomitant]
     Active Substance: SERENOA REPENS WHOLE
     Dosage: UNK
     Dates: end: 20160725
  2. LIPIDIL [Concomitant]
     Active Substance: FENOFIBRATE
     Dosage: UNK
     Dates: end: 20160725
  3. GONAX [Suspect]
     Active Substance: DEGARELIX
     Dosage: 240 MG, ONCE/SINGLE
     Route: 058
     Dates: start: 20150918, end: 20150918
  4. BLADDERON [Concomitant]
     Active Substance: FLAVOXATE
     Dosage: UNK
     Dates: end: 20160725
  5. FOSAMAC [Concomitant]
     Active Substance: ALENDRONATE SODIUM
     Dosage: UNK
     Dates: start: 20160106, end: 20160725
  6. EDIROL [Concomitant]
     Active Substance: ELDECALCITOL
     Dosage: UNK
     Dates: start: 20160106, end: 20160725
  7. TAMSULOSIN HYDROCHLORIDE. [Concomitant]
     Active Substance: TAMSULOSIN HYDROCHLORIDE
     Dosage: UNK
     Dates: end: 20160725
  8. ONBREZ [Concomitant]
     Active Substance: INDACATEROL
     Dosage: UNK
     Dates: start: 20160520
  9. GONAX [Suspect]
     Active Substance: DEGARELIX
     Indication: PROSTATE CANCER
     Dosage: 80 MG, MONTHLY
     Route: 058
     Dates: start: 20151016, end: 20160613
  10. CRESTOR [Concomitant]
     Active Substance: ROSUVASTATIN CALCIUM
     Dosage: UNK
     Dates: end: 20160725
  11. URSODEOXYCHOLIC ACID [Concomitant]
     Active Substance: URSODIOL
     Dosage: UNK
     Dates: end: 20160725

REACTIONS (1)
  - Interstitial lung disease [Fatal]

NARRATIVE: CASE EVENT DATE: 20160617
